FAERS Safety Report 11625677 (Version 4)
Quarter: 2016Q4

REPORT INFORMATION
  Report Type: Spontaneous
  Country: US (occurrence: US)
  Receive Date: 20151013
  Receipt Date: 20161221
  Transmission Date: 20170206
  Serious: Yes (Disabling, Other)
  Sender: FDA-Public Use
  Company Number: US-009507513-1510USA004908

PATIENT
  Sex: Female

DRUGS (1)
  1. IMPLANON [Suspect]
     Active Substance: ETONOGESTREL
     Indication: PRODUCT USED FOR UNKNOWN INDICATION
     Dosage: 1 DF, UNKNOWN
     Route: 059
     Dates: start: 20120206

REACTIONS (14)
  - Endometriosis [Not Recovered/Not Resolved]
  - Menstruation irregular [Not Recovered/Not Resolved]
  - Scar [Unknown]
  - Adenotonsillectomy [Unknown]
  - Weight increased [Unknown]
  - Knee operation [Unknown]
  - Complication associated with device [Unknown]
  - Pelvic pain [Not Recovered/Not Resolved]
  - Difficulty removing drug implant [Not Recovered/Not Resolved]
  - Hernia repair [Unknown]
  - Migraine [Unknown]
  - Complication associated with device [Not Recovered/Not Resolved]
  - Back pain [Unknown]
  - Dysmenorrhoea [Not Recovered/Not Resolved]

NARRATIVE: CASE EVENT DATE: 20130827
